FAERS Safety Report 7319032-9 (Version None)
Quarter: 2011Q1

REPORT INFORMATION
  Report Type: 
  Country: None (occurrence: None)
  Receive Date: 20110228
  Receipt Date: 20110217
  Transmission Date: 20110831
  Serious: Yes (Other)
  Sender: FDA-Public Use
  Company Number: BR-JNJFOC-20110206889

PATIENT
  Age: 41 Year
  Sex: Female

DRUGS (5)
  1. TOPIRAMATE [Suspect]
     Route: 048
  2. TOPIRAMATE [Suspect]
     Indication: CONVULSION
     Route: 048
  3. TOPIRAMATE [Suspect]
     Route: 048
  4. VALPROIC ACID [Suspect]
     Indication: CONVULSION
     Route: 065
  5. TOPIRAMATE [Suspect]
     Route: 048

REACTIONS (5)
  - DEPERSONALISATION [None]
  - DEREALISATION [None]
  - DRUG INEFFECTIVE [None]
  - ACUTE PSYCHOSIS [None]
  - ANXIETY [None]
